FAERS Safety Report 25613121 (Version 1)
Quarter: 2025Q3

REPORT INFORMATION
  Report Type: Spontaneous
  Country: US (occurrence: None)
  Receive Date: 20250726
  Receipt Date: 20250726
  Transmission Date: 20251020
  Serious: Yes (Disabling, Other)
  Sender: FDA-CTU
  Company Number: None

PATIENT
  Age: 38 Year
  Sex: Female

DRUGS (1)
  1. ESCITALOPRAM [Suspect]
     Active Substance: ESCITALOPRAM OXALATE
     Indication: Generalised anxiety disorder
     Route: 048
     Dates: start: 20200115, end: 20241025

REACTIONS (33)
  - Withdrawal syndrome [None]
  - Tinnitus [None]
  - Anxiety [None]
  - Panic attack [None]
  - Fear [None]
  - Intrusive thoughts [None]
  - Anhedonia [None]
  - Depersonalisation/derealisation disorder [None]
  - Derealisation [None]
  - Restlessness [None]
  - Electric shock sensation [None]
  - Heart rate increased [None]
  - Hyperhidrosis [None]
  - Chills [None]
  - Vomiting [None]
  - Insomnia [None]
  - Dizziness [None]
  - Hypophagia [None]
  - Muscle spasms [None]
  - Tremor [None]
  - Palpitations [None]
  - Acne [None]
  - Headache [None]
  - Vision blurred [None]
  - Vitreous floaters [None]
  - Hyperacusis [None]
  - Stress [None]
  - Rash macular [None]
  - Rash erythematous [None]
  - Oedema peripheral [None]
  - Dysphagia [None]
  - Sexual dysfunction [None]
  - Quality of life decreased [None]

NARRATIVE: CASE EVENT DATE: 20250522
